FAERS Safety Report 10877850 (Version 1)
Quarter: 2015Q1

REPORT INFORMATION
  Report Type: Spontaneous
  Country: KR (occurrence: KR)
  Receive Date: 20150302
  Receipt Date: 20150302
  Transmission Date: 20150721
  Serious: Yes (Other)
  Sender: FDA-Public Use
  Company Number: KR-PFIZER INC-2015071381

PATIENT

DRUGS (1)
  1. CELEBREX [Suspect]
     Active Substance: CELECOXIB
     Dosage: UNK
     Route: 048

REACTIONS (1)
  - Spinal column stenosis [Unknown]
